FAERS Safety Report 4895090-6 (Version None)
Quarter: 2006Q1

REPORT INFORMATION
  Report Type: 
  Country: None (occurrence: None)
  Receive Date: 20060124
  Receipt Date: 20060111
  Transmission Date: 20060701
  Serious: Yes (Death)
  Sender: FDA-Public Use
  Company Number: DE-2006-000508

PATIENT
  Age: 67 Year
  Sex: Male
  Weight: 67 kg

DRUGS (7)
  1. CAMPATH [Suspect]
     Indication: CHRONIC LYMPHOCYTIC LEUKAEMIA
     Dosage: SEE IMAGE
     Route: 042
     Dates: start: 20051010, end: 20051014
  2. CAMPATH [Suspect]
     Indication: CHRONIC LYMPHOCYTIC LEUKAEMIA
     Dosage: SEE IMAGE
     Route: 042
     Dates: start: 20051130, end: 20051130
  3. CAMPATH [Suspect]
     Indication: CHRONIC LYMPHOCYTIC LEUKAEMIA
     Dosage: SEE IMAGE
     Route: 042
     Dates: start: 20051017, end: 20051209
  4. ANTIHISTAMINES [Concomitant]
  5. CORTICOSTEROIDS [Concomitant]
  6. CO-TRIMOXAZOLE (CO-TRIMOXAZOLE) [Concomitant]
  7. FAMCICLOVIR (FAMCICLOVIR) [Concomitant]

REACTIONS (5)
  - ANAEMIA [None]
  - CHILLS [None]
  - DYSPNOEA [None]
  - HAEMATOTOXICITY [None]
  - PYREXIA [None]
